FAERS Safety Report 8543151-2 (Version None)
Quarter: 2012Q3

REPORT INFORMATION
  Report Type: 
  Country: None (occurrence: None)
  Receive Date: 20120727
  Receipt Date: 20120330
  Transmission Date: 20120928
  Serious: No
  Sender: FDA-Public Use
  Company Number: US-MYLANLABS-2012S1005976

PATIENT
  Age: 72 Year
  Sex: Female
  Weight: 54.43 kg

DRUGS (4)
  1. LITHIUM CARBONATE [Concomitant]
     Indication: BIPOLAR DISORDER
  2. HALOPERIDOL [Suspect]
     Indication: BIPOLAR DISORDER
  3. TYLENOL [Concomitant]
  4. CAFFEINE [Concomitant]

REACTIONS (8)
  - BALANCE DISORDER [None]
  - ASTHENOPIA [None]
  - DIZZINESS [None]
  - NAUSEA [None]
  - MUSCLE CONTRACTIONS INVOLUNTARY [None]
  - INSOMNIA [None]
  - MYALGIA [None]
  - ROSEOLA [None]
